FAERS Safety Report 9250269 (Version 3)
Quarter: 2014Q1

REPORT INFORMATION
  Report Type: Spontaneous
  Country: US (occurrence: US)
  Receive Date: 20130424
  Receipt Date: 20140107
  Transmission Date: 20141002
  Serious: Yes (Other)
  Sender: FDA-Public Use
  Company Number: US-ASTRAZENECA-2013SE27379

PATIENT
  Age: 73 Year
  Sex: Female

DRUGS (1)
  1. NEXIUM [Suspect]
     Route: 048
     Dates: start: 20060329

REACTIONS (10)
  - Osteoarthritis [Unknown]
  - Arthritis [Unknown]
  - Osteoporosis [Unknown]
  - Bone disorder [Unknown]
  - Multiple fractures [Unknown]
  - Cataract [Unknown]
  - Diabetes mellitus [Unknown]
  - Scoliosis [Unknown]
  - Gait disturbance [Unknown]
  - Osteopenia [Unknown]
